FAERS Safety Report 13814641 (Version 1)
Quarter: 2017Q3

REPORT INFORMATION
  Report Type: Spontaneous
  Country: US (occurrence: US)
  Receive Date: 20170729
  Receipt Date: 20170729
  Transmission Date: 20171127
  Serious: Yes (Hospitalization)
  Sender: FDA-Public Use
  Company Number: None

PATIENT
  Age: 82 Year
  Sex: Male

DRUGS (1)
  1. APIXABAN [Suspect]
     Active Substance: APIXABAN
     Indication: ATRIAL FIBRILLATION
     Route: 048
     Dates: start: 20170428

REACTIONS (8)
  - Dizziness [None]
  - Haemoglobin decreased [None]
  - Gastric haemorrhage [None]
  - Alcohol use [None]
  - Creatinine renal clearance decreased [None]
  - Asthenia [None]
  - Gastric ulcer [None]
  - Inhibitory drug interaction [None]

NARRATIVE: CASE EVENT DATE: 20170630
